FAERS Safety Report 8893462 (Version 1)
Quarter: 2012Q4

REPORT INFORMATION
  Report Type: 
  Country: US (occurrence: US)
  Receive Date: 20121107
  Receipt Date: 20121107
  Transmission Date: 20130627
  Serious: No
  Sender: FDA-Public Use
  Company Number: US-AMGEN-USASP2011061354

PATIENT
  Age: 52 Year
  Sex: Female

DRUGS (10)
  1. ENBREL [Suspect]
     Indication: PRODUCT USED FOR UNKNOWN INDICATION
     Dosage: 50 mg, qwk
  2. XANAX [Concomitant]
     Dosage: 1 mg, UNK
  3. SOMA [Concomitant]
     Dosage: 250 mg, UNK
  4. PREDNISONE [Concomitant]
     Dosage: 1 mg, UNK
  5. ZYRTEC [Concomitant]
     Dosage: 5 mg, UNK
  6. SYNTHROID [Concomitant]
     Dosage: 100 mug, UNK
  7. HYDROXYCHLOROQUINE [Concomitant]
     Dosage: 200 mg, UNK
  8. HYDROCODONE [Concomitant]
  9. DICLOFENAC [Concomitant]
     Dosage: 25 mg, UNK
  10. HUMIRA [Concomitant]
     Dosage: 40 mg, UNK

REACTIONS (1)
  - Lung infection [Unknown]
